FAERS Safety Report 4514091-0 (Version None)
Quarter: 2004Q4

REPORT INFORMATION
  Report Type: 
  Country: None (occurrence: None)
  Receive Date: 20041130
  Receipt Date: 20040811
  Transmission Date: 20050328
  Serious: Yes (Disabling)
  Sender: FDA-Public Use
  Company Number: PHNR2004AU01332

PATIENT
  Sex: Female

DRUGS (7)
  1. TEGRETOL [Suspect]
     Indication: BIPOLAR DISORDER
     Dosage: 1000 MG, BID
     Dates: start: 20030101
  2. TEGRETOL [Suspect]
     Dosage: 600 MG, BID
  3. TEGRETOL [Suspect]
     Dosage: 600 MG MANE, 800 MG NOCTE
  4. EFFEXOR [Concomitant]
  5. OROXINE [Concomitant]
  6. TEGRETOL [Suspect]
  7. EFFEXOR XR [Concomitant]
     Dates: start: 20040701

REACTIONS (4)
  - DIZZINESS [None]
  - DRUG INEFFECTIVE [None]
  - MEDICATION ERROR [None]
  - VERTIGO [None]
